FAERS Safety Report 10328263 (Version 3)
Quarter: 2015Q2

REPORT INFORMATION
  Report Type: Report from Study
  Country: GR (occurrence: GR)
  Receive Date: 20140721
  Receipt Date: 20150521
  Transmission Date: 20150821
  Serious: Yes (Death, Congenital Anomaly)
  Sender: FDA-Public Use
  Company Number: GR-NOVOPROD-416698

PATIENT

DRUGS (3)
  1. INSULATARD NPH HUMAN [Suspect]
     Active Substance: INSULIN HUMAN
     Indication: GESTATIONAL DIABETES
     Dosage: 18 IU, QD
     Route: 064
     Dates: start: 20140529, end: 20140702
  2. LANTUS [Concomitant]
     Active Substance: INSULIN GLARGINE
     Indication: GESTATIONAL DIABETES
     Dosage: 18 IU, QD (AT NIGHT)
     Dates: start: 20140704
  3. NOVORAPID [Suspect]
     Active Substance: INSULIN ASPART
     Indication: GESTATIONAL DIABETES
     Dosage: 18 IU, QD (6 IU+6 IU+6 IU)
     Route: 064
     Dates: start: 20140529, end: 20140703

REACTIONS (2)
  - Foetal exposure during pregnancy [Recovered/Resolved]
  - Congenital anomaly [Fatal]

NARRATIVE: CASE EVENT DATE: 20140529
